FAERS Safety Report 21394248 (Version 2)
Quarter: 2022Q4

REPORT INFORMATION
  Report Type: Spontaneous
  Country: ES (occurrence: ES)
  Receive Date: 20220930
  Receipt Date: 20221029
  Transmission Date: 20230113
  Serious: Yes (Other)
  Sender: FDA-Public Use
  Company Number: None

PATIENT
  Age: 16 Year
  Sex: Female
  Weight: 39.2 kg

DRUGS (3)
  1. QUETIAPINE [Suspect]
     Active Substance: QUETIAPINE
     Indication: Product used for unknown indication
     Dosage: QUETIAPINA (1136A), UNIT DOSE : 25 MG, FREQUENCY TIME : 1 DAY, DURATION : 377 DAYS
     Dates: start: 20210714, end: 20220725
  2. FLUOXETINE [Concomitant]
     Active Substance: FLUOXETINE HYDROCHLORIDE
     Indication: Product used for unknown indication
     Dosage: UNIT DOSE : 40 MG; FREQUENCY TIME : 1 DAY, FLUOXETINA (2331A)
     Dates: start: 20210614
  3. ARIPIPRAZOLE [Concomitant]
     Active Substance: ARIPIPRAZOLE
     Indication: Product used for unknown indication
     Dosage: UNIT DOSE : 2.5MG, FREQUENCY TIME : 1 DAY, ARIPIPRAZOL (2933A)
     Dates: start: 20211215

REACTIONS (1)
  - Hepatocellular injury [Recovering/Resolving]

NARRATIVE: CASE EVENT DATE: 20220524
